FAERS Safety Report 7010497-9 (Version None)
Quarter: 2010Q3

REPORT INFORMATION
  Report Type: 
  Country: None (occurrence: None)
  Receive Date: 20100923
  Receipt Date: 20100913
  Transmission Date: 20110219
  Serious: Yes (Hospitalization, Other)
  Sender: FDA-Public Use
  Company Number: US-ABBOTT-10P-163-0671040-00

PATIENT
  Sex: Male

DRUGS (6)
  1. ADALIMUMAB [Suspect]
     Indication: RHEUMATOID ARTHRITIS
     Dates: start: 20041016
  2. LISINOPRIL [Concomitant]
     Indication: HYPERTENSION
  3. CARTIA XT [Concomitant]
     Indication: HYPERTENSION
  4. PREDNISONE [Concomitant]
     Indication: RHEUMATOID ARTHRITIS
  5. VICODIN [Concomitant]
     Indication: PAIN
  6. MORPHINE [Concomitant]
     Indication: PAIN

REACTIONS (9)
  - ABDOMINAL DISTENSION [None]
  - ABDOMINAL PAIN UPPER [None]
  - BLOOD CHOLESTEROL INCREASED [None]
  - DIABETES MELLITUS [None]
  - FLATULENCE [None]
  - GLAUCOMA [None]
  - HELICOBACTER INFECTION [None]
  - MYOCARDIAL INFARCTION [None]
  - SCLERITIS [None]
